FAERS Safety Report 7631246-7 (Version None)
Quarter: 2011Q3

REPORT INFORMATION
  Report Type: 
  Country: None (occurrence: None)
  Receive Date: 20110701
  Receipt Date: 20110310
  Transmission Date: 20111222
  Serious: Yes (Hospitalization)
  Sender: FDA-Public Use
  Company Number: 7046860

PATIENT
  Age: 40 Year
  Sex: Female

DRUGS (2)
  1. STEROIDS (CORTICOSTEROIDS) [Concomitant]
  2. REBIF [Suspect]
     Indication: MULTIPLE SCLEROSIS
     Dates: start: 20051213

REACTIONS (1)
  - MULTIPLE SCLEROSIS RELAPSE [None]
